FAERS Safety Report 4536811-1 (Version None)
Quarter: 2004Q4

REPORT INFORMATION
  Report Type: 
  Country: None (occurrence: None)
  Receive Date: 20041220
  Receipt Date: 20041206
  Transmission Date: 20050328
  Serious: Yes (Hospitalization)
  Sender: FDA-Public Use
  Company Number: 2004GB02876

PATIENT
  Age: 25 Year
  Sex: Male

DRUGS (8)
  1. ATENOLOL [Suspect]
     Dosage: 100 MG ONCE PO
     Route: 048
  2. METFORMIN HCL [Suspect]
     Dosage: 800 MG ONCE PO
     Route: 048
  3. ACAMPROSTATE [Suspect]
     Dosage: 7900 MG ONCE PO
     Route: 048
  4. CLOZARIL [Suspect]
     Dosage: 2700 MG ONCE PO
     Route: 048
  5. ZOPICLONE [Suspect]
     Dosage: 60 MG ONCE PO
     Route: 048
  6. SULPRID [Suspect]
     Dosage: 6400 MG ONCE PO
     Route: 048
  7. VENLAFAXINE HCL [Suspect]
     Dosage: 600 MG ONCE PO
     Route: 048
  8. LAMOTRIGINE [Suspect]
     Dosage: 1200 MG ONCE PO
     Route: 048

REACTIONS (4)
  - METABOLIC ACIDOSIS [None]
  - OVERDOSE [None]
  - SOMNOLENCE [None]
  - SUICIDE ATTEMPT [None]
